FAERS Safety Report 17250111 (Version 1)
Quarter: 2020Q1

REPORT INFORMATION
  Report Type: Spontaneous
  Country: FR (occurrence: FR)
  Receive Date: 20200109
  Receipt Date: 20200109
  Transmission Date: 20200409
  Serious: Yes (Hospitalization)
  Sender: FDA-Public Use
  Company Number: FR-ACCORD-168809

PATIENT
  Age: 64 Year
  Sex: Female
  Weight: 71 kg

DRUGS (11)
  1. SPIRONOLACTONE. [Suspect]
     Active Substance: SPIRONOLACTONE
     Indication: HYPERTENSION
     Route: 048
     Dates: end: 20191216
  2. TAHOR [Suspect]
     Active Substance: ATORVASTATIN CALCIUM
     Indication: DYSLIPIDAEMIA
     Dosage: STRENGTH:40 MG FILM-COATED TABLET
     Route: 048
     Dates: end: 20191216
  3. BISOPROLOL [Concomitant]
     Active Substance: BISOPROLOL
  4. SERTRALINE [Suspect]
     Active Substance: SERTRALINE HYDROCHLORIDE
     Indication: BIPOLAR DISORDER
     Route: 048
     Dates: end: 20191216
  5. RAMIPRIL. [Suspect]
     Active Substance: RAMIPRIL
     Indication: HYPERTENSION
     Route: 048
     Dates: end: 20191216
  6. THERALENE [Suspect]
     Active Substance: TRIMEPRAZINE
     Indication: BIPOLAR DISORDER
     Dosage: STRENGTH: 5 MG, SCORED FILM-COATED TABLET
     Route: 048
     Dates: end: 20191216
  7. TERALITHE [Suspect]
     Active Substance: LITHIUM CARBONATE
     Indication: BIPOLAR DISORDER
     Dosage: STRENGTH:400 MG  PROLONGED-RELEASE SCORED TABLET
     Route: 048
     Dates: end: 20191216
  8. BUSPIRONE [Concomitant]
     Active Substance: BUSPIRONE HYDROCHLORIDE
  9. STILNOX [Suspect]
     Active Substance: ZOLPIDEM TARTRATE
     Indication: SLEEP DISORDER
     Dosage: STRENGTH:10 MG, SCORED FILM-COATED TABLET
     Route: 048
     Dates: end: 20191217
  10. TEMESTA [LORAZEPAM] [Suspect]
     Active Substance: LORAZEPAM
     Indication: BIPOLAR DISORDER
     Dosage: STRENGTH:2.5 MG, SCORED TABLET LAST ADMINISTRATION: 16-DEC-2019
     Route: 048
  11. AMIODARONE [Concomitant]
     Active Substance: AMIODARONE

REACTIONS (5)
  - Behaviour disorder [Recovered/Resolved]
  - Balance disorder [Recovered/Resolved]
  - Cerebellar syndrome [Recovered/Resolved]
  - Acute kidney injury [Recovered/Resolved]
  - Confusional state [Recovered/Resolved]

NARRATIVE: CASE EVENT DATE: 201912
